FAERS Safety Report 12521175 (Version 1)
Quarter: 2016Q2

REPORT INFORMATION
  Report Type: Spontaneous
  Country: US (occurrence: None)
  Receive Date: 20160630
  Receipt Date: 20160630
  Transmission Date: 20160815
  Serious: Yes (Hospitalization)
  Sender: FDA-Public Use
  Company Number: None

PATIENT
  Age: 58 Year
  Sex: Female
  Weight: 95.39 kg

DRUGS (1)
  1. LETROZOLE. [Suspect]
     Active Substance: LETROZOLE
     Dates: end: 20160624

REACTIONS (10)
  - Nausea [None]
  - Pyelonephritis [None]
  - Hypophagia [None]
  - Fatigue [None]
  - Urinary tract infection [None]
  - Abdominal pain upper [None]
  - Pyrexia [None]
  - Pleural effusion [None]
  - Vomiting [None]
  - Hydronephrosis [None]

NARRATIVE: CASE EVENT DATE: 20160624
